FAERS Safety Report 19367344 (Version 1)
Quarter: 2021Q2

REPORT INFORMATION
  Report Type: Spontaneous
  Country: FR (occurrence: FR)
  Receive Date: 20210603
  Receipt Date: 20210603
  Transmission Date: 20210717
  Serious: Yes (Other)
  Sender: FDA-Public Use
  Company Number: FR-PFIZER INC-2021589705

PATIENT
  Age: 60 Year
  Sex: Female
  Weight: 76 kg

DRUGS (9)
  1. METFORMINE [METFORMIN] [Concomitant]
     Active Substance: METFORMIN HYDROCHLORIDE
  2. LASILIX [FUROSEMIDE] [Concomitant]
     Active Substance: FUROSEMIDE
  3. DALACINE [Suspect]
     Active Substance: CLINDAMYCIN
     Indication: ERYSIPELAS
     Dosage: 600 MG, 3X/DAY
     Route: 041
     Dates: start: 20210225, end: 20210302
  4. DIFFU K [Concomitant]
     Active Substance: POTASSIUM CHLORIDE
  5. AUGMENTIN [Suspect]
     Active Substance: AMOXICILLIN\CLAVULANATE POTASSIUM
     Indication: ERYSIPELAS
     Dosage: FREQ:8 H;
     Route: 041
     Dates: start: 20210224, end: 20210303
  6. LANTUS [Concomitant]
     Active Substance: INSULIN GLARGINE
  7. HALDOL [Concomitant]
     Active Substance: HALOPERIDOL
  8. KARDEGIC [Concomitant]
     Active Substance: ASPIRIN DL-LYSINE
  9. AMIODARONE [Concomitant]
     Active Substance: AMIODARONE

REACTIONS (3)
  - Eosinophilia [Not Recovered/Not Resolved]
  - Erythema [Recovering/Resolving]
  - Cholestasis [Recovering/Resolving]

NARRATIVE: CASE EVENT DATE: 20210226
